FAERS Safety Report 22208765 (Version 1)
Quarter: 2023Q2

REPORT INFORMATION
  Report Type: Spontaneous
  Country: None (occurrence: CA)
  Receive Date: 20230413
  Receipt Date: 20230413
  Transmission Date: 20230722
  Serious: Yes (Hospitalization, Other)
  Sender: FDA-Public Use
  Company Number: CA-B.Braun Medical Inc.-2140298

PATIENT
  Age: 44 Year
  Sex: Male

DRUGS (18)
  1. CEFAZOLIN [Suspect]
     Active Substance: CEFAZOLIN
  2. ALLOPURINOL [Suspect]
     Active Substance: ALLOPURINOL
  3. CHOLECALCIFEROL [Suspect]
     Active Substance: CHOLECALCIFEROL
  4. CYCLOPHOSPHAMIDE [Suspect]
     Active Substance: CYCLOPHOSPHAMIDE
  5. CYCLOSPORINE [Suspect]
     Active Substance: CYCLOSPORINE
  6. CYCLOSPORINE [Suspect]
     Active Substance: CYCLOSPORINE
  7. CYTARABINE [Suspect]
     Active Substance: CYTARABINE
  8. DAUNORUBICIN [Suspect]
     Active Substance: DAUNORUBICIN
  9. DEXAMETHASONE [Suspect]
     Active Substance: DEXAMETHASONE
  10. ETOPOSIDE [Suspect]
     Active Substance: ETOPOSIDE
  11. FASTURTEC [Suspect]
     Active Substance: RASBURICASE
  12. FILGRASTIM [Suspect]
     Active Substance: FILGRASTIM
  13. FUROSEMIDE [Suspect]
     Active Substance: FUROSEMIDE
  14. METOCLOPRAMIDE HYDROCHLORIDE [Suspect]
     Active Substance: METOCLOPRAMIDE HYDROCHLORIDE
  15. MYCAMINE [Suspect]
     Active Substance: MICAFUNGIN SODIUM
  16. ONDANSETRON HYDROCHLORIDE [Suspect]
     Active Substance: ONDANSETRON HYDROCHLORIDE
  17. POTASSIUM [Suspect]
     Active Substance: POTASSIUM
  18. ZINECARD [Suspect]
     Active Substance: DEXRAZOXANE HYDROCHLORIDE

REACTIONS (10)
  - Bacterial infection [Unknown]
  - Cellulitis [Unknown]
  - Clostridium difficile colitis [Unknown]
  - Cytomegalovirus viraemia [Unknown]
  - Disseminated aspergillosis [Unknown]
  - Fungal infection [Unknown]
  - Lymphoid tissue hypoplasia [Unknown]
  - Lymphopenia [Unknown]
  - Product use in unapproved indication [Unknown]
  - Thymus hypoplasia [Unknown]
